FAERS Safety Report 24236960 (Version 1)
Quarter: 2024Q3

REPORT INFORMATION
  Report Type: Spontaneous
  Country: US (occurrence: US)
  Receive Date: 20240822
  Receipt Date: 20240822
  Transmission Date: 20241016
  Serious: No
  Sender: AMGEN
  Company Number: US-AMGEN-USASP2024167357

PATIENT
  Age: 58 Year
  Sex: Female

DRUGS (1)
  1. TEPEZZA [Suspect]
     Active Substance: TEPROTUMUMAB-TRBW
     Indication: Endocrine ophthalmopathy
     Dosage: UNK UNK, Q3WK,  FOR 8 INFUSIONS
     Route: 042
     Dates: start: 20240730

REACTIONS (3)
  - Fatigue [Unknown]
  - Headache [Unknown]
  - Muscle spasms [Unknown]
